FAERS Safety Report 6913094-6 (Version None)
Quarter: 2010Q3

REPORT INFORMATION
  Report Type: 
  Country: None (occurrence: None)
  Receive Date: 20100806
  Receipt Date: 20090708
  Transmission Date: 20110219
  Serious: No
  Sender: FDA-Public Use
  Company Number: US-PFIZER INC-2008061429

PATIENT
  Sex: Male
  Weight: 102 kg

DRUGS (8)
  1. DETROL LA [Suspect]
     Indication: HYPERTONIC BLADDER
     Dosage: 4 MG, 1X/DAY
     Dates: start: 20080401, end: 20090501
  2. DETROL LA [Suspect]
     Dosage: 4 MG, 1X/DAY AT BEDTIME
     Dates: start: 20081101, end: 20090501
  3. OMEPRAZOLE [Concomitant]
  4. LISINOPRIL [Concomitant]
  5. ROSIGLITAZONE [Concomitant]
  6. SIMVASTATIN [Concomitant]
  7. INSULIN [Concomitant]
  8. WARFARIN SODIUM [Concomitant]

REACTIONS (4)
  - MUSCLE DISORDER [None]
  - MUSCLE SPASMS [None]
  - OEDEMA PERIPHERAL [None]
  - WEIGHT INCREASED [None]
